FAERS Safety Report 8859938 (Version 1)
Quarter: 2012Q4

REPORT INFORMATION
  Report Type: Report from Study
  Country: DE (occurrence: JP)
  Receive Date: 20121025
  Receipt Date: 20121025
  Transmission Date: 20130627
  Serious: Yes (Other)
  Sender: FDA-Public Use
  Company Number: JP-BRISTOL-MYERS SQUIBB COMPANY-17042219

PATIENT
  Age: 74 Year
  Sex: Female
  Weight: 52 kg

DRUGS (5)
  1. ERBITUX SOLN FOR INF 5MG/ML [Suspect]
     Indication: RECTAL CANCER
     Dosage: 600mg:18-18Mar2009
300mg:25Mar2009-Ong
     Route: 041
     Dates: start: 20090318
  2. IRINOTECAN HCL [Suspect]
     Indication: RECTAL CANCER
     Route: 041
     Dates: start: 20090318, end: 20091202
  3. CHLORPHENIRAMINE MALEATE [Concomitant]
     Indication: PREMEDICATION
     Route: 042
     Dates: start: 20090318
  4. DEXAMETHASONE SODIUM PHOSPHATE [Concomitant]
     Indication: PREMEDICATION
     Route: 042
     Dates: start: 20090318
  5. AZASETRON HCL [Concomitant]
     Indication: PROPHYLAXIS OF NAUSEA AND VOMITING
     Route: 065
     Dates: start: 20090318

REACTIONS (4)
  - Cholecystitis [Recovering/Resolving]
  - Acne [Recovered/Resolved]
  - Paronychia [Recovered/Resolved]
  - Stomatitis [Recovered/Resolved]
